FAERS Safety Report 9485060 (Version 1)
Quarter: 2013Q3

REPORT INFORMATION
  Report Type: Spontaneous
  Country: US (occurrence: US)
  Receive Date: 20130828
  Receipt Date: 20130828
  Transmission Date: 20140515
  Serious: No
  Sender: FDA-Public Use
  Company Number: US-ABBOTT-13P-163-1124118-00

PATIENT
  Age: 75 Year
  Sex: Male
  Weight: 77.18 kg

DRUGS (13)
  1. ANDROGEL [Suspect]
     Indication: HYPOPITUITARISM
     Dosage: TWO PUMPS DAILY
     Dates: start: 201306
  2. LEVOTHYROXINE [Concomitant]
     Indication: HYPOTHALAMO-PITUITARY DISORDER
  3. HYDROCORTISONE [Concomitant]
     Indication: HYPOTHALAMO-PITUITARY DISORDER
  4. BRIMONIDINE [Concomitant]
     Indication: GLAUCOMA
  5. BRIMONIDINE [Concomitant]
     Indication: PROPHYLAXIS
  6. TANTRATE [Concomitant]
     Indication: GLAUCOMA
  7. TANTRATE [Concomitant]
     Indication: PROPHYLAXIS
  8. AGGRENOX [Concomitant]
     Indication: CEREBROVASCULAR ACCIDENT
  9. AGGRENOX [Concomitant]
     Indication: PROPHYLAXIS
  10. CENTRUM [Concomitant]
     Indication: PRODUCT USED FOR UNKNOWN INDICATION
  11. CALCIUM [Concomitant]
     Indication: PRODUCT USED FOR UNKNOWN INDICATION
  12. SELENIUM [Concomitant]
     Indication: PRODUCT USED FOR UNKNOWN INDICATION
  13. VITAMIN D [Concomitant]
     Indication: PRODUCT USED FOR UNKNOWN INDICATION

REACTIONS (5)
  - Erectile dysfunction [Not Recovered/Not Resolved]
  - Drug ineffective [Not Recovered/Not Resolved]
  - Sexual dysfunction [Not Recovered/Not Resolved]
  - Lethargy [Not Recovered/Not Resolved]
  - Off label use [Not Recovered/Not Resolved]
